FAERS Safety Report 10196509 (Version 2)
Quarter: 2014Q2

REPORT INFORMATION
  Report Type: Spontaneous
  Country: IN (occurrence: IN)
  Receive Date: 20140527
  Receipt Date: 20140527
  Transmission Date: 20141212
  Serious: Yes (Death)
  Sender: FDA-Public Use
  Company Number: IN-PFIZER INC-2014139232

PATIENT
  Age: 53 Year
  Sex: Female

DRUGS (6)
  1. VORICONAZOLE [Suspect]
     Indication: ASPERGILLUS INFECTION
     Dosage: UNK
  2. PIPERACILLIN/TAZOBACTAM [Suspect]
     Indication: ABDOMINAL INFECTION
     Dosage: UNK
  3. MEROPENEM [Suspect]
     Indication: KLEBSIELLA INFECTION
  4. LINEZOLID [Suspect]
     Indication: BACTERIAL INFECTION
  5. AMPHOTERICIN [Suspect]
     Indication: ASPERGILLUS INFECTION
     Dosage: UNK
  6. AMPHOTERICIN [Suspect]
     Indication: ZYGOMYCOSIS

REACTIONS (2)
  - Drug ineffective [Fatal]
  - Septic shock [Fatal]
